FAERS Safety Report 7230625-X (Version None)
Quarter: 2011Q1

REPORT INFORMATION
  Report Type: 
  Country: None (occurrence: None)
  Receive Date: 20110117
  Receipt Date: 20110105
  Transmission Date: 20110831
  Serious: Yes (Hospitalization, Other)
  Sender: FDA-Public Use
  Company Number: US-ELI_LILLY_AND_COMPANY-US201101001654

PATIENT
  Sex: Female

DRUGS (2)
  1. FORTEO [Suspect]
     Indication: OSTEOPOROSIS
     Dosage: 20 UG, DAILY (1/D)
     Dates: start: 20090601
  2. PREDNISONE [Concomitant]
     Dosage: 5 MG, UNKNOWN

REACTIONS (4)
  - JOINT SWELLING [None]
  - GAIT DISTURBANCE [None]
  - KNEE ARTHROPLASTY [None]
  - ARTHRALGIA [None]
